FAERS Safety Report 16502222 (Version 1)
Quarter: 2019Q3

REPORT INFORMATION
  Report Type: Spontaneous
  Country: US (occurrence: US)
  Receive Date: 20190701
  Receipt Date: 20190701
  Transmission Date: 20191004
  Serious: No
  Sender: FDA-Public Use
  Company Number: US-PFIZER INC-2019270196

PATIENT
  Age: 11 Year
  Sex: Female

DRUGS (3)
  1. PROAIR HFA [Concomitant]
     Active Substance: ALBUTEROL SULFATE
     Dosage: UNK
  2. IBUPROFEN. [Concomitant]
     Active Substance: IBUPROFEN
     Dosage: UNK
  3. GENOTROPIN [Suspect]
     Active Substance: SOMATROPIN
     Indication: GROWTH RETARDATION
     Dosage: 0.9 MG, DAILY (SEVEN DAYS PER WEEK)
     Dates: start: 20190528

REACTIONS (9)
  - Malaise [Unknown]
  - Dehydration [Unknown]
  - Pain in extremity [Unknown]
  - Device leakage [Unknown]
  - Application site bruise [Unknown]
  - Arthralgia [Unknown]
  - Incorrect dose administered by device [Unknown]
  - Product dose omission [Unknown]
  - Vomiting [Unknown]
